FAERS Safety Report 19091238 (Version 1)
Quarter: 2021Q2

REPORT INFORMATION
  Report Type: Spontaneous
  Country: NL (occurrence: NL)
  Receive Date: 20210405
  Receipt Date: 20210405
  Transmission Date: 20210717
  Serious: Yes (Other)
  Sender: FDA-Public Use
  Company Number: NL-TEVA-2021-NL-1897399

PATIENT
  Age: 24 Year
  Sex: Female
  Weight: 120 kg

DRUGS (4)
  1. CLINDAMYCINE CAPSULE 300MG / BRAND NAME NOT SPECIFIED [Suspect]
     Active Substance: CLINDAMYCIN HYDROCHLORIDE
     Dosage: 300 MG (MILLIGRAM),THERAPY START DATE :ASKU,THERAPY END DATE :ASKU
  2. RIFAMPICINE CAPSULE 300MG / RIFADIN CAPSULE 300MG [Concomitant]
     Dosage: 4 DOSAGE FORMS DAILY;   THERAPY END DATE :ASKU
     Dates: start: 20210101
  3. CLINDAMYCINE CAPSULE 300MG / BRAND NAME NOT SPECIFIED [Suspect]
     Active Substance: CLINDAMYCIN HYDROCHLORIDE
     Dosage: 4 DOSAGE FORMS DAILY; THERAPY END DATE :ASKU
     Dates: start: 202101
  4. RIFAMPICINE CAPSULE 300MG / RIFADIN CAPSULE 300MG [Concomitant]
     Dosage: 300 MG (MILLIGRAM),THERAPY START DATE :ASKU,THERAPY END DATE :ASKU

REACTIONS (14)
  - Nausea [Recovered/Resolved]
  - Headache [Recovered/Resolved]
  - Pyrexia [Recovered/Resolved]
  - Arthralgia [Recovered/Resolved]
  - Injection site warmth [Recovered/Resolved]
  - Malaise [Not Recovered/Not Resolved]
  - Injection site erythema [Recovered/Resolved]
  - Nephrolithiasis [Not Recovered/Not Resolved]
  - Fatigue [Not Recovered/Not Resolved]
  - Myalgia [Recovered/Resolved]
  - Injection site inflammation [Recovered/Resolved]
  - Injection site pain [Recovered/Resolved]
  - Injection site swelling [Recovered/Resolved]
  - Chills [Recovered/Resolved]

NARRATIVE: CASE EVENT DATE: 20210213
